FAERS Safety Report 17699160 (Version 3)
Quarter: 2022Q3

REPORT INFORMATION
  Report Type: Spontaneous
  Country: CA (occurrence: CA)
  Receive Date: 20200423
  Receipt Date: 20220824
  Transmission Date: 20221026
  Serious: Yes (Other)
  Sender: FDA-Public Use
  Company Number: CA-SA-2020SA101058

PATIENT
  Age: 39 Year
  Sex: Female

DRUGS (29)
  1. ARAVA [Suspect]
     Active Substance: LEFLUNOMIDE
     Dosage: UNK
  2. ARAVA [Suspect]
     Active Substance: LEFLUNOMIDE
  3. COLCHICINE [Suspect]
     Active Substance: COLCHICINE
  4. COLCHICINE [Suspect]
     Active Substance: COLCHICINE
  5. CELECOXIB [Suspect]
     Active Substance: CELECOXIB
     Indication: Myalgia
  6. ESTRADIOL [Suspect]
     Active Substance: ESTRADIOL
     Dosage: UNK UNK, QD
     Route: 061
  7. PREDNISONE [Suspect]
     Active Substance: PREDNISONE
     Dosage: 50 MG
  8. PREDNISONE [Suspect]
     Active Substance: PREDNISONE
  9. MELOXICAM [Suspect]
     Active Substance: MELOXICAM
     Indication: Myalgia
  10. MELOXICAM [Suspect]
     Active Substance: MELOXICAM
  11. METHOTREXATE [Suspect]
     Active Substance: METHOTREXATE
     Route: 048
  12. METHOTREXATE [Suspect]
     Active Substance: METHOTREXATE
     Dosage: UNK
     Route: 042
  13. METHOTREXATE [Suspect]
     Active Substance: METHOTREXATE
  14. PLAQUENIL [Suspect]
     Active Substance: HYDROXYCHLOROQUINE SULFATE
     Dosage: 2 DF, QD
  15. PLAQUENIL [Suspect]
     Active Substance: HYDROXYCHLOROQUINE SULFATE
  16. ALBUTEROL SULFATE [Suspect]
     Active Substance: ALBUTEROL SULFATE
  17. SULFASALAZINE [Suspect]
     Active Substance: SULFASALAZINE
  18. SULFASALAZINE [Suspect]
     Active Substance: SULFASALAZINE
  19. BELIMUMAB [Suspect]
     Active Substance: BELIMUMAB
  20. BELIMUMAB [Suspect]
     Active Substance: BELIMUMAB
  21. BREO ELLIPTA [Suspect]
     Active Substance: FLUTICASONE FUROATE\VILANTEROL TRIFENATATE
     Route: 055
  22. BREO ELLIPTA [Suspect]
     Active Substance: FLUTICASONE FUROATE\VILANTEROL TRIFENATATE
  23. DEXILANT [Suspect]
     Active Substance: DEXLANSOPRAZOLE
     Dosage: 60 MG, QD
     Route: 048
  24. DEXILANT [Suspect]
     Active Substance: DEXLANSOPRAZOLE
  25. RITUXIMAB [Suspect]
     Active Substance: RITUXIMAB
  26. RITUXIMAB [Suspect]
     Active Substance: RITUXIMAB
  27. VENTOLIN HFA [Suspect]
     Active Substance: ALBUTEROL SULFATE
  28. CELEBREX [Suspect]
     Active Substance: CELECOXIB
  29. ESTROGEL [Suspect]
     Active Substance: ESTRADIOL

REACTIONS (24)
  - Abdominal discomfort [Not Recovered/Not Resolved]
  - Antinuclear antibody positive [Not Recovered/Not Resolved]
  - Arthralgia [Not Recovered/Not Resolved]
  - Lip swelling [Not Recovered/Not Resolved]
  - Lymphadenopathy [Not Recovered/Not Resolved]
  - Heavy menstrual bleeding [Unknown]
  - Musculoskeletal stiffness [Not Recovered/Not Resolved]
  - Myalgia [Not Recovered/Not Resolved]
  - Parotid gland enlargement [Unknown]
  - Peripheral swelling [Not Recovered/Not Resolved]
  - Hypoaesthesia [Not Recovered/Not Resolved]
  - Systemic lupus erythematosus [Not Recovered/Not Resolved]
  - Sjogren^s syndrome [Not Recovered/Not Resolved]
  - Joint swelling [Not Recovered/Not Resolved]
  - Dry mouth [Not Recovered/Not Resolved]
  - Blister [Not Recovered/Not Resolved]
  - Rheumatoid arthritis [Not Recovered/Not Resolved]
  - Arthritis [Not Recovered/Not Resolved]
  - Leukopenia [Not Recovered/Not Resolved]
  - Headache [Not Recovered/Not Resolved]
  - Nausea [Unknown]
  - Hypersensitivity vasculitis [Not Recovered/Not Resolved]
  - Vasculitis [Not Recovered/Not Resolved]
  - Cutaneous vasculitis [Unknown]
